FAERS Safety Report 4745804-0 (Version None)
Quarter: 2005Q3

REPORT INFORMATION
  Report Type: 
  Country: None (occurrence: None)
  Receive Date: 20050815
  Receipt Date: 20050815
  Transmission Date: 20060218
  Serious: Yes (Life-Threatening)
  Sender: FDA-Public Use
  Company Number: None

PATIENT
  Age: 43 Year
  Sex: Female
  Weight: 63.5036 kg

DRUGS (1)
  1. ZOLOFT [Suspect]
     Indication: ANXIETY DISORDER
     Dosage: 100MG   BEDTIME   ORAL
     Route: 048
     Dates: start: 19990101, end: 20020131

REACTIONS (11)
  - AGITATION [None]
  - CRYING [None]
  - DECREASED ACTIVITY [None]
  - DEPRESSION [None]
  - DRUG WITHDRAWAL SYNDROME [None]
  - FEELING ABNORMAL [None]
  - IMPULSIVE BEHAVIOUR [None]
  - NEGLECT OF PERSONAL APPEARANCE [None]
  - NOCTURNAL DYSPNOEA [None]
  - SEDATION [None]
  - SUICIDAL IDEATION [None]
